FAERS Safety Report 7685699-9 (Version None)
Quarter: 2011Q3

REPORT INFORMATION
  Report Type: 
  Country: None (occurrence: None)
  Receive Date: 20110816
  Receipt Date: 20110812
  Transmission Date: 20111222
  Serious: Yes (Other)
  Sender: FDA-Public Use
  Company Number: US-PFIZER INC-2011186334

PATIENT
  Sex: Female
  Weight: 81.6 kg

DRUGS (1)
  1. PREMARIN [Suspect]
     Indication: HOT FLUSH
     Dosage: UNK; AT NIGHT
     Route: 067
     Dates: start: 20110802, end: 20110804

REACTIONS (5)
  - FEELING ABNORMAL [None]
  - VISION BLURRED [None]
  - FATIGUE [None]
  - HYPOGLYCAEMIA [None]
  - DIZZINESS [None]
